FAERS Safety Report 13175290 (Version 2)
Quarter: 2017Q2

REPORT INFORMATION
  Report Type: Spontaneous
  Country: US (occurrence: US)
  Receive Date: 20170201
  Receipt Date: 20170606
  Transmission Date: 20170830
  Serious: Yes (Hospitalization)
  Sender: FDA-Public Use
  Company Number: US-JNJFOC-20170127205

PATIENT
  Age: 81 Year
  Sex: Male

DRUGS (16)
  1. DUTASTERIDE. [Concomitant]
     Active Substance: DUTASTERIDE
  2. FUROSEMIDE. [Concomitant]
     Active Substance: FUROSEMIDE
  3. MAGNESIUM OXIDE. [Concomitant]
     Active Substance: MAGNESIUM OXIDE
  4. CLOPIDOGREL [Concomitant]
     Active Substance: CLOPIDOGREL BISULFATE
  5. CYANOCOBALAMIN. [Concomitant]
     Active Substance: CYANOCOBALAMIN
  6. IBUPROFEN. [Concomitant]
     Active Substance: IBUPROFEN
  7. ASA [Concomitant]
     Active Substance: ASPIRIN
  8. VITAMIN D [Concomitant]
     Active Substance: CHOLECALCIFEROL
  9. GABAPENTIN. [Concomitant]
     Active Substance: GABAPENTIN
  10. IMBRUVICA [Suspect]
     Active Substance: IBRUTINIB
     Indication: CHRONIC LYMPHOCYTIC LEUKAEMIA
     Route: 065
  11. FISH OIL [Concomitant]
     Active Substance: FISH OIL
  12. MULTIVITAMINS [Concomitant]
     Active Substance: VITAMINS
  13. TAMSULOSIN [Concomitant]
     Active Substance: TAMSULOSIN
  14. IMBRUVICA [Suspect]
     Active Substance: IBRUTINIB
     Indication: CHRONIC LYMPHOCYTIC LEUKAEMIA
     Route: 065
     Dates: start: 20160325, end: 20161219
  15. ATORVASTATIN [Concomitant]
     Active Substance: ATORVASTATIN
  16. ZINC. [Concomitant]
     Active Substance: ZINC

REACTIONS (4)
  - Aspartate aminotransferase abnormal [Unknown]
  - Acute kidney injury [Recovered/Resolved]
  - Alanine aminotransferase abnormal [Unknown]
  - Urinary tract infection [Recovered/Resolved]

NARRATIVE: CASE EVENT DATE: 20161219
